FAERS Safety Report 9986161 (Version 1)
Quarter: 2014Q1

REPORT INFORMATION
  Report Type: Spontaneous
  Country: US (occurrence: US)
  Receive Date: 20140307
  Receipt Date: 20140307
  Transmission Date: 20141002
  Serious: No
  Sender: FDA-Public Use
  Company Number: US-ABBVIE-13P-163-1087530-00

PATIENT
  Age: 31 Year
  Sex: Male

DRUGS (4)
  1. HUMIRA [Suspect]
     Indication: COLITIS ULCERATIVE
     Dates: start: 20130226, end: 20130226
  2. HUMIRA [Suspect]
     Dates: start: 20130312, end: 20130312
  3. HUMIRA [Suspect]
     Dates: start: 20130326, end: 20130416
  4. HUMIRA [Suspect]
     Dates: start: 20130416

REACTIONS (4)
  - Clostridium difficile colitis [Unknown]
  - Colitis ulcerative [Not Recovered/Not Resolved]
  - Diarrhoea [Not Recovered/Not Resolved]
  - Abdominal pain [Not Recovered/Not Resolved]
